FAERS Safety Report 23055074 (Version 4)
Quarter: 2024Q3

REPORT INFORMATION
  Report Type: Report from Study
  Country: NL (occurrence: NL)
  Receive Date: 20231011
  Receipt Date: 20240709
  Transmission Date: 20241017
  Serious: Yes (Other)
  Sender: ABBVIE
  Company Number: NL-ABBVIE-4309853

PATIENT
  Sex: Male

DRUGS (18)
  1. CARBIDOPA\LEVODOPA [Suspect]
     Active Substance: CARBIDOPA\LEVODOPA
     Indication: Parkinson^s disease
     Dosage: MD: 8.0 ML, CD: 2.0 ML/H, ED: 2.0 ML?REMAINS AT 16 HOURS
     Route: 050
  2. CARBIDOPA\LEVODOPA [Suspect]
     Active Substance: CARBIDOPA\LEVODOPA
     Dosage: REMAINS AT 16 HOURS
     Route: 050
  3. CARBIDOPA\LEVODOPA [Suspect]
     Active Substance: CARBIDOPA\LEVODOPA
     Dosage: MD: 8.0 ML, CD: 2.3 ML/H, ED: 2.1 ML?REMAINS AT 16 HOURS
     Route: 050
     Dates: start: 20231206, end: 20240527
  4. CARBIDOPA\LEVODOPA [Suspect]
     Active Substance: CARBIDOPA\LEVODOPA
     Dosage: MD: 8.0 ML, CD: 2.4 ML/H, ED: 2.10 ML?REMAINS AT 16 HOURS
     Route: 050
     Dates: start: 20240703
  5. CARBIDOPA\LEVODOPA [Suspect]
     Active Substance: CARBIDOPA\LEVODOPA
     Dosage: MD: 4.0 ML, CD: 1.6 ML/H, ED: 1.0 ML?REMAINS AT 16 HOURS
     Route: 050
  6. CARBIDOPA\LEVODOPA [Suspect]
     Active Substance: CARBIDOPA\LEVODOPA
     Dosage: MD: 8.0 ML, CD: 1.9 ML/H, ED: 1.8 ML?FIRST ADMINISTRATION DATE 2023?LAST ADMINISTRATION DATE 2023
     Route: 050
  7. CARBIDOPA\LEVODOPA [Suspect]
     Active Substance: CARBIDOPA\LEVODOPA
     Dosage: MD: 5.0 ML, CD: 1.9 ML/H, ED: 2.0 ML?LAST ADMINISTRATION DATE 2023?REMAINS AT 16 HOURS
     Route: 050
     Dates: start: 20230116
  8. CARBIDOPA\LEVODOPA [Suspect]
     Active Substance: CARBIDOPA\LEVODOPA
     Dosage: MD: 8.0 ML, CD: 2.4 ML/H, ED: 2.1 ML?REMAINS AT 16 HOURS
     Route: 050
     Dates: start: 20230621, end: 20231206
  9. CARBIDOPA\LEVODOPA [Suspect]
     Active Substance: CARBIDOPA\LEVODOPA
     Dosage: MD: 4.0 ML, CD: 1.4 ML/H, ED: 1.0 ML?FIRST ADMINISTRATION DATE 2023?LAST ADMINISTRATION DATE 2023
     Route: 050
  10. CARBIDOPA\LEVODOPA [Suspect]
     Active Substance: CARBIDOPA\LEVODOPA
     Dosage: MD: 4.0 ML, CD: 1.6 ML/H, ED: 1.0 ML?FIRST ADMINISTRATION DATE 2023?LAST ADMINISTRATION DATE 2023...
     Route: 050
  11. CARBIDOPA\LEVODOPA [Suspect]
     Active Substance: CARBIDOPA\LEVODOPA
     Dosage: MD: 8.0 ML, CD: 1.9 ML/H, ED: 2.0 ML?FIRST ADMINISTRATION DATE 2023?LAST ADMINISTRATION DATE 2023...
     Route: 050
  12. CARBIDOPA\LEVODOPA [Suspect]
     Active Substance: CARBIDOPA\LEVODOPA
     Dosage: MD: 8.0 ML, CD: 2.0 ML/H, ED: 2.0 ML?FIRST ADMINISTRATION DATE 2023?LAST ADMINISTRATION DATE 2023...
     Route: 050
  13. CARBIDOPA\LEVODOPA [Suspect]
     Active Substance: CARBIDOPA\LEVODOPA
     Dosage: MD: 8.0 ML, CD: 2.3 ML/H, ED: 2.10 ML?REMAINS AT 16 HOURS
     Route: 050
     Dates: start: 20240527, end: 20240703
  14. CARBIDOPA\LEVODOPA [Suspect]
     Active Substance: CARBIDOPA\LEVODOPA
     Dosage: MD: 4.0 ML, CD: 1.4 ML/H, ED: 1.0 ML
     Route: 050
  15. CARBIDOPA\LEVODOPA [Suspect]
     Active Substance: CARBIDOPA\LEVODOPA
     Dosage: MD: 8.0 ML, CD: 1.9 ML/H, ED: 1.8 ML
     Route: 050
  16. BENSERAZIDE HYDROCHLORIDE\LEVODOPA [Concomitant]
     Active Substance: BENSERAZIDE HYDROCHLORIDE\LEVODOPA
     Indication: On and off phenomenon
     Dosage: AT 6:45 AM AND AROUND 8:00 AM
     Route: 065
  17. OXAZEPAM [Concomitant]
     Active Substance: OXAZEPAM
     Indication: Hallucination
     Route: 065
  18. CITALOPRAM [Concomitant]
     Active Substance: CITALOPRAM\CITALOPRAM HYDROBROMIDE
     Indication: Depressed mood

REACTIONS (41)
  - Hip arthroplasty [Unknown]
  - Depression [Recovered/Resolved]
  - Therapeutic product effect incomplete [Not Recovered/Not Resolved]
  - Hiccups [Not Recovered/Not Resolved]
  - Dyskinesia [Not Recovered/Not Resolved]
  - Unevaluable event [Not Recovered/Not Resolved]
  - Freezing phenomenon [Not Recovered/Not Resolved]
  - Fatigue [Not Recovered/Not Resolved]
  - Abdominal discomfort [Not Recovered/Not Resolved]
  - Middle insomnia [Not Recovered/Not Resolved]
  - Bone contusion [Not Recovered/Not Resolved]
  - Limb injury [Not Recovered/Not Resolved]
  - Disease risk factor [Not Recovered/Not Resolved]
  - Unevaluable event [Not Recovered/Not Resolved]
  - Pain [Recovering/Resolving]
  - On and off phenomenon [Not Recovered/Not Resolved]
  - Fall [Recovered/Resolved]
  - Wound complication [Not Recovered/Not Resolved]
  - Hallucination [Recovering/Resolving]
  - Wound [Not Recovered/Not Resolved]
  - Arthropathy [Not Recovered/Not Resolved]
  - Joint injury [Not Recovered/Not Resolved]
  - Fibroma [Not Recovered/Not Resolved]
  - Memory impairment [Not Recovered/Not Resolved]
  - Intentional product misuse [Not Recovered/Not Resolved]
  - Intentional product misuse [Not Recovered/Not Resolved]
  - Device material issue [Not Recovered/Not Resolved]
  - Weight increased [Not Recovered/Not Resolved]
  - Hypersomnia [Not Recovered/Not Resolved]
  - Depressed mood [Recovered/Resolved]
  - Procedural pain [Not Recovered/Not Resolved]
  - Device material issue [Not Recovered/Not Resolved]
  - Hernia [Not Recovered/Not Resolved]
  - Muscle rigidity [Not Recovered/Not Resolved]
  - Unevaluable event [Not Recovered/Not Resolved]
  - Device issue [Not Recovered/Not Resolved]
  - Unevaluable event [Not Recovered/Not Resolved]
  - Gait disturbance [Not Recovered/Not Resolved]
  - Device breakage [Not Recovered/Not Resolved]
  - Device issue [Unknown]
  - Fall [Unknown]

NARRATIVE: CASE EVENT DATE: 20230101
